FAERS Safety Report 11714009 (Version 1)
Quarter: 2015Q4

REPORT INFORMATION
  Report Type: Spontaneous
  Country: DE (occurrence: DE)
  Receive Date: 20151109
  Receipt Date: 20151109
  Transmission Date: 20160304
  Serious: Yes (Other)
  Sender: FDA-Public Use
  Company Number: DE-PACIRA PHARMACEUTICALS, INC.-2015DEPDE00665

PATIENT
  Sex: Female

DRUGS (8)
  1. DEPOCYT [Suspect]
     Active Substance: CYTARABINE
     Indication: ACUTE MYELOMONOCYTIC LEUKAEMIA
     Dosage: UNK UNK, UNK
     Route: 065
     Dates: start: 201510
  2. VFEND [Concomitant]
     Active Substance: VORICONAZOLE
     Route: 065
  3. DECITABINE. [Concomitant]
     Active Substance: DECITABINE
     Route: 065
  4. ACICLOVIR [Concomitant]
     Active Substance: ACYCLOVIR
     Route: 065
  5. LINEZOLID. [Concomitant]
     Active Substance: LINEZOLID
     Route: 065
  6. METHOTREXATE [Concomitant]
     Active Substance: METHOTREXATE
     Route: 065
  7. LYRICA [Concomitant]
     Active Substance: PREGABALIN
     Route: 065
  8. TILIDIN [Concomitant]
     Active Substance: NALOXONE HYDROCHLORIDE\TILIDINE HYDROCHLORIDE
     Route: 065

REACTIONS (3)
  - Motor dysfunction [Not Recovered/Not Resolved]
  - Arachnoiditis [Not Recovered/Not Resolved]
  - Spinal cord oedema [Not Recovered/Not Resolved]

NARRATIVE: CASE EVENT DATE: 201510
